FAERS Safety Report 5095085-6 (Version None)
Quarter: 2006Q3

REPORT INFORMATION
  Report Type: 
  Country: None (occurrence: None)
  Receive Date: 20060901
  Receipt Date: 20060822
  Transmission Date: 20061208
  Serious: Yes (Other)
  Sender: FDA-Public Use
  Company Number: US-NOVOPROD-256307

PATIENT

DRUGS (5)
  1. PRANDIN [Suspect]
     Indication: DIABETES MELLITUS
     Dates: end: 20000815
  2. ATENOLOL [Concomitant]
     Indication: HYPERTENSION
     Dosage: UNK, UNK
  3. HYZAAR [Concomitant]
     Indication: HYPERTENSION
  4. PEGASYS                            /01557901/ [Suspect]
     Indication: HEPATITIS C
     Route: 058
  5. COPEGUS [Suspect]
     Indication: HEPATITIS C
     Dosage: 200 MG, UNK
     Route: 048

REACTIONS (1)
  - AUTOIMMUNE HEPATITIS [None]
